FAERS Safety Report 6254027-8 (Version None)
Quarter: 2009Q3

REPORT INFORMATION
  Report Type: 
  Country: None (occurrence: None)
  Receive Date: 20090702
  Receipt Date: 20090625
  Transmission Date: 20100115
  Serious: Yes (Other)
  Sender: FDA-Public Use
  Company Number: US-ROCHE-640720

PATIENT
  Age: 68 Year
  Sex: Female

DRUGS (5)
  1. VALIUM [Suspect]
     Indication: ANXIETY
     Route: 048
  2. GLUCOPHAGE [Concomitant]
  3. LIPITOR [Concomitant]
  4. PROTONIX [Concomitant]
  5. LOTENSIN [Concomitant]

REACTIONS (4)
  - ANXIETY [None]
  - DIABETES MELLITUS [None]
  - DRUG INEFFECTIVE [None]
  - INSOMNIA [None]
